FAERS Safety Report 17828734 (Version 1)
Quarter: 2020Q2

REPORT INFORMATION
  Report Type: Spontaneous
  Country: GB (occurrence: GB)
  Receive Date: 20200527
  Receipt Date: 20200527
  Transmission Date: 20200714
  Serious: Yes (Hospitalization, Other)
  Sender: FDA-Public Use
  Company Number: GB-TEVA-2020-GB-1239852

PATIENT
  Age: 21 Year
  Sex: Male
  Weight: 57.15 kg

DRUGS (1)
  1. CLARITHROMYCIN CITRATE [Suspect]
     Active Substance: CLARITHROMYCIN CITRATE
     Indication: TONSILLITIS
     Dosage: 1000 MG
     Route: 048
     Dates: start: 20200319, end: 20200322

REACTIONS (3)
  - Gingival ulceration [Recovered/Resolved]
  - Lip ulceration [Recovered/Resolved]
  - Tongue ulceration [Recovered/Resolved]

NARRATIVE: CASE EVENT DATE: 20200322
